FAERS Safety Report 8614068-X (Version None)
Quarter: 2012Q3

REPORT INFORMATION
  Report Type: 
  Country: None (occurrence: None)
  Receive Date: 20120823
  Receipt Date: 20120810
  Transmission Date: 20120928
  Serious: Yes (Hospitalization, Other)
  Sender: FDA-Public Use
  Company Number: US-009507513-1104USA03264

PATIENT

DRUGS (8)
  1. FOSAMAX [Suspect]
     Indication: OSTEOPENIA
     Dosage: 10 MG, UNK
     Route: 048
     Dates: start: 19970116, end: 20010201
  2. FOSAMAX [Suspect]
     Indication: OSTEOPOROSIS
     Dosage: 70 UNK, UNK
     Route: 048
     Dates: start: 20010213, end: 20080417
  3. ALENDRONATE SODIUM [Suspect]
     Indication: OSTEOPENIA
     Dosage: 70 MG, UNK
     Route: 048
     Dates: start: 20080417, end: 20090601
  4. VITAMIN D [Concomitant]
     Indication: OSTEOPENIA
     Dosage: 800 UNK, UNK
     Dates: start: 19860101
  5. ASCORBIC ACID [Concomitant]
     Indication: OSTEOPENIA
     Dosage: 500 MG, QD
     Dates: start: 19970101
  6. ALENDRONATE SODIUM [Suspect]
     Indication: OSTEOPOROSIS
  7. VITAMINS (UNSPECIFIED) [Concomitant]
     Dosage: UNK
     Dates: start: 19820101
  8. CALCIUM CITRATE (+) CHOLECALCIFEROL [Concomitant]
     Indication: OSTEOPENIA
     Dosage: 1000 MG, UNK
     Dates: start: 19860101, end: 20120101

REACTIONS (19)
  - BRONCHITIS [None]
  - MALAISE [None]
  - BLADDER OPERATION [None]
  - ADVERSE EVENT [None]
  - SQUAMOUS CELL CARCINOMA [None]
  - FEMUR FRACTURE [None]
  - BIOPSY BONE [None]
  - SURGERY [None]
  - ANXIETY [None]
  - RASH [None]
  - NASOPHARYNGITIS [None]
  - BREAST CANCER [None]
  - HYPERTENSION [None]
  - ARTHRITIS [None]
  - MUSCLE SPASMS [None]
  - INTRAMEDULLARY ROD INSERTION [None]
  - BREAST LUMP REMOVAL [None]
  - PAIN IN EXTREMITY [None]
  - GASTROOESOPHAGEAL REFLUX DISEASE [None]
